FAERS Safety Report 11482612 (Version 1)
Quarter: 2015Q3

REPORT INFORMATION
  Report Type: Spontaneous
  Country: US (occurrence: None)
  Receive Date: 20150908
  Receipt Date: 20150908
  Transmission Date: 20151125
  Serious: No
  Sender: FDA-Public Use
  Company Number: None

PATIENT
  Age: 50 Year
  Sex: Female
  Weight: 65.77 kg

DRUGS (4)
  1. METROPROLOL [Concomitant]
     Active Substance: METOPROLOL
  2. CLARITIN [Concomitant]
     Active Substance: LORATADINE
  3. MIRALAX [Suspect]
     Active Substance: POLYETHYLENE GLYCOL 3350
     Indication: COLONOSCOPY
     Dosage: SINGLE DOSE
     Route: 048
  4. HCTZ [Concomitant]
     Active Substance: HYDROCHLOROTHIAZIDE

REACTIONS (6)
  - Nausea [None]
  - Fatigue [None]
  - Gastrointestinal disorder [None]
  - Defaecation urgency [None]
  - Disturbance in attention [None]
  - Feeling drunk [None]

NARRATIVE: CASE EVENT DATE: 20150902
